FAERS Safety Report 16238788 (Version 1)
Quarter: 2019Q2

REPORT INFORMATION
  Report Type: Report from Study
  Country: CA (occurrence: CA)
  Receive Date: 20190425
  Receipt Date: 20190425
  Transmission Date: 20190711
  Serious: Yes (Hospitalization)
  Sender: FDA-Public Use
  Company Number: CA-JNJFOC-20190431971

PATIENT
  Age: 73 Year
  Sex: Male
  Weight: 103.5 kg

DRUGS (1)
  1. REMICADE [Suspect]
     Active Substance: INFLIXIMAB
     Indication: RHEUMATOID ARTHRITIS
     Route: 042

REACTIONS (3)
  - Pneumonia [Unknown]
  - Herpes zoster [Unknown]
  - Candida infection [Unknown]

NARRATIVE: CASE EVENT DATE: 201903
